FAERS Safety Report 5127108-X (Version None)
Quarter: 2006Q4

REPORT INFORMATION
  Report Type: 
  Country: None (occurrence: None)
  Receive Date: 20061013
  Receipt Date: 20061003
  Transmission Date: 20070319
  Serious: Yes (Other)
  Sender: FDA-Public Use
  Company Number: ES-SANOFI-SYNTHELABO-A01200608182

PATIENT
  Sex: Female
  Weight: 72.5 kg

DRUGS (3)
  1. LEUCOVORIN CALCIUM [Suspect]
     Route: 042
  2. ELOXATIN [Suspect]
     Indication: COLON CANCER
     Route: 042
  3. ELOXATIN [Suspect]

REACTIONS (6)
  - ANAPHYLACTIC REACTION [None]
  - BRONCHOSPASM [None]
  - HYPOTENSION [None]
  - PHARMACEUTICAL PRODUCT COMPLAINT [None]
  - PRURITUS [None]
  - RESPIRATORY ARREST [None]
